FAERS Safety Report 6583916-X (Version None)
Quarter: 2010Q1

REPORT INFORMATION
  Report Type: 
  Country: None (occurrence: None)
  Receive Date: 20100213
  Receipt Date: 20100213
  Transmission Date: 20100710
  Serious: Yes (Life-Threatening, Hospitalization)
  Sender: FDA-Public Use
  Company Number: None

PATIENT
  Sex: Male
  Weight: 70 kg

DRUGS (1)
  1. COPAXONE [Suspect]
     Indication: AMYOTROPHIC LATERAL SCLEROSIS
     Dosage: 40 MG DAILY SQ, BEST ESTIMATION
     Route: 058

REACTIONS (4)
  - AMYOTROPHIC LATERAL SCLEROSIS [None]
  - CONDITION AGGRAVATED [None]
  - GENERAL PHYSICAL HEALTH DETERIORATION [None]
  - INJURY [None]
